FAERS Safety Report 7251139-7 (Version None)
Quarter: 2011Q1

REPORT INFORMATION
  Report Type: 
  Country: None (occurrence: None)
  Receive Date: 20110128
  Receipt Date: 20101130
  Transmission Date: 20110831
  Serious: Yes (Hospitalization, Other)
  Sender: FDA-Public Use
  Company Number: US-BAYER-201033728NA

PATIENT
  Sex: Female
  Weight: 58.957 kg

DRUGS (9)
  1. YASMIN [Suspect]
     Indication: MIGRAINE
     Dosage: UNK UNK, UNK
     Route: 048
     Dates: start: 20080201, end: 20090827
  2. ZITHROMAX [Concomitant]
     Indication: PNEUMONIA
  3. ALBUTEROL SULFATE [Concomitant]
     Indication: PNEUMONIA
  4. CALCIUM CITRATE [Concomitant]
  5. OCELLA [Suspect]
     Indication: MENSTRUATION IRREGULAR
  6. OCELLA [Suspect]
     Indication: MIGRAINE
     Dosage: UNK UNK, UNK
     Route: 048
     Dates: start: 20080201, end: 20090827
  7. NAPROXEN [Concomitant]
  8. UNCODEABLE ^UNCLASSIFIABLE^ [Concomitant]
  9. YASMIN [Suspect]
     Indication: MENSTRUATION IRREGULAR

REACTIONS (6)
  - ASTHENIA [None]
  - SYNCOPE [None]
  - DYSPNOEA [None]
  - DIARRHOEA [None]
  - DEEP VEIN THROMBOSIS [None]
  - PULMONARY EMBOLISM [None]
